FAERS Safety Report 9485820 (Version 2)
Quarter: 2013Q3

REPORT INFORMATION
  Report Type: Report from Study
  Country: CA (occurrence: CA)
  Receive Date: 20130829
  Receipt Date: 20130909
  Transmission Date: 20140515
  Serious: Yes (Other)
  Sender: FDA-Public Use
  Company Number: PHHY2013CA093606

PATIENT
  Sex: Female

DRUGS (3)
  1. ACLASTA [Suspect]
     Indication: OSTEOPOROSIS
     Dosage: UNK
     Route: 042
     Dates: start: 20100412
  2. ACLASTA [Suspect]
     Dosage: UNK
     Route: 042
     Dates: start: 20110525
  3. ACLASTA [Suspect]
     Dosage: UNK
     Route: 042
     Dates: start: 20120607

REACTIONS (6)
  - Neoplasm recurrence [Not Recovered/Not Resolved]
  - Lung neoplasm [Not Recovered/Not Resolved]
  - General physical health deterioration [Unknown]
  - Fatigue [Unknown]
  - Decreased appetite [Unknown]
  - Asthenia [Unknown]
